FAERS Safety Report 7068479-7 (Version None)
Quarter: 2010Q4

REPORT INFORMATION
  Report Type: 
  Country: None (occurrence: None)
  Receive Date: 20101028
  Receipt Date: 20101021
  Transmission Date: 20110411
  Serious: Yes (Death)
  Sender: FDA-Public Use
  Company Number: US-JNJCH-2007332175

PATIENT
  Age: 3 Month

DRUGS (5)
  1. ACETAMINOPHEN [Suspect]
     Dosage: TEXT:UNSPECIFIED
     Route: 065
  2. PSEUDOEPHEDRINE HCL [Suspect]
     Indication: NASOPHARYNGITIS
     Dosage: TEXT:UNSPECIFIED
     Route: 065
  3. DEXTROMETHORPHAN [Suspect]
     Dosage: TEXT:UNSPECIFIED
     Route: 065
  4. EPHEDRINE [Suspect]
     Dosage: TEXT:UNSPECIFIED
     Route: 065
  5. LEVORPHANOL TARTRATE [Suspect]
     Route: 065

REACTIONS (5)
  - DRUG TOXICITY [None]
  - LUNG DISORDER [None]
  - OVERDOSE [None]
  - PETECHIAE [None]
  - SUDDEN INFANT DEATH SYNDROME [None]
